FAERS Safety Report 25239050 (Version 1)
Quarter: 2025Q2

REPORT INFORMATION
  Report Type: Spontaneous
  Country: US (occurrence: US)
  Receive Date: 20250425
  Receipt Date: 20250425
  Transmission Date: 20250717
  Serious: Yes (Other)
  Sender: AMGEN
  Company Number: US-AMGEN-USASP2025077098

PATIENT
  Age: 3 Year
  Sex: Male

DRUGS (5)
  1. BLINATUMOMAB [Suspect]
     Active Substance: BLINATUMOMAB
     Indication: B-cell type acute leukaemia
     Route: 065
  2. PREDNISONE [Suspect]
     Active Substance: PREDNISONE
     Indication: B-cell type acute leukaemia
     Route: 065
  3. VINCRISTINE [Concomitant]
     Active Substance: VINCRISTINE
  4. DAUNORUBICIN [Concomitant]
     Active Substance: DAUNORUBICIN
  5. ASPARAGINASE [Concomitant]
     Active Substance: ASPARAGINASE

REACTIONS (3)
  - Acute lymphocytic leukaemia recurrent [Unknown]
  - Graft versus host disease in skin [Unknown]
  - Graft versus host disease in gastrointestinal tract [Unknown]
